APPROVED DRUG PRODUCT: OXYCODONE HYDROCHLORIDE
Active Ingredient: OXYCODONE HYDROCHLORIDE
Strength: 5MG
Dosage Form/Route: TABLET;ORAL
Application: A076636 | Product #003
Applicant: ACTAVIS ELIZABETH LLC
Approved: Apr 7, 2015 | RLD: No | RS: No | Type: DISCN